FAERS Safety Report 8473140-8 (Version None)
Quarter: 2012Q2

REPORT INFORMATION
  Report Type: 
  Country: None (occurrence: None)
  Receive Date: 20120627
  Receipt Date: 20120621
  Transmission Date: 20120825
  Serious: Yes (Other)
  Sender: FDA-Public Use
  Company Number: US-PFIZER INC-2012150074

PATIENT
  Sex: Female
  Weight: 77.098 kg

DRUGS (4)
  1. GEODON [Suspect]
     Dosage: 20 MG, EVERY OTHER DAY
  2. TRAZODONE [Concomitant]
     Dosage: 50 MG, 1X/DAY
  3. GEODON [Suspect]
     Indication: SCHIZOPHRENIA
     Dosage: 20 MG, UNK
     Route: 048
  4. ZIPRASIDONE HCL [Suspect]
     Indication: SCHIZOPHRENIA
     Dosage: 20 MG, UNK
     Route: 048
     Dates: start: 20120501, end: 20120501

REACTIONS (6)
  - OROPHARYNGEAL PAIN [None]
  - HEPATITIS C [None]
  - APTYALISM [None]
  - INAPPROPRIATE SCHEDULE OF DRUG ADMINISTRATION [None]
  - DRY THROAT [None]
  - CONSTIPATION [None]
